FAERS Safety Report 20579515 (Version 1)
Quarter: 2022Q1

REPORT INFORMATION
  Report Type: Spontaneous
  Country: CN (occurrence: CN)
  Receive Date: 20220310
  Receipt Date: 20220310
  Transmission Date: 20220423
  Serious: Yes (Other)
  Sender: FDA-Public Use
  Company Number: CN-PFIZER INC-202200342484

PATIENT
  Age: 2 Year
  Sex: Male

DRUGS (1)
  1. AZITHROMYCIN [Suspect]
     Active Substance: AZITHROMYCIN
     Indication: Pneumonia
     Dosage: 0.12 G, 1X/DAY
     Route: 041
     Dates: start: 20220213, end: 20220213

REACTIONS (5)
  - Nausea [Recovering/Resolving]
  - Pallor [Unknown]
  - Depressed mood [Unknown]
  - Tachypnoea [Recovering/Resolving]
  - Off label use [Unknown]

NARRATIVE: CASE EVENT DATE: 20220213
